FAERS Safety Report 7883385-3 (Version None)
Quarter: 2011Q4

REPORT INFORMATION
  Report Type: 
  Country: None (occurrence: None)
  Receive Date: 20111102
  Receipt Date: 20111102
  Transmission Date: 20120403
  Serious: Yes (Hospitalization)
  Sender: FDA-Public Use
  Company Number: None

PATIENT
  Age: 20 Year
  Sex: Male
  Weight: 72.574 kg

DRUGS (1)
  1. WALGREENS NON-DROWSY DAYTIME COLD AND FLU [Suspect]
     Indication: NASOPHARYNGITIS
     Dosage: 2 TABLESPOONS/30 ML
     Route: 048
     Dates: start: 20111101, end: 20111101

REACTIONS (2)
  - DYSPNOEA [None]
  - URTICARIA [None]
